FAERS Safety Report 22044870 (Version 2)
Quarter: 2023Q1

REPORT INFORMATION
  Report Type: Spontaneous
  Country: JP (occurrence: JP)
  Receive Date: 20230228
  Receipt Date: 20230330
  Transmission Date: 20230418
  Serious: Yes (Other)
  Sender: FDA-Public Use
  Company Number: JP-BRISTOL-MYERS SQUIBB COMPANY-2023-025871

PATIENT
  Age: 71 Year
  Sex: Male
  Weight: 37.1 kg

DRUGS (8)
  1. ENTECAVIR [Suspect]
     Active Substance: ENTECAVIR
     Indication: Chronic hepatitis B
     Dosage: IN MAY 20XX-5, THE DOSE WAS CHANGED TO 0.5 MG DAILY
  2. ENTECAVIR [Suspect]
     Active Substance: ENTECAVIR
     Dosage: FROM OCTOBER 20XX-5, 0.5 MG WAS ADMINISTERED EVERY OTHER DAY, AND WAS TEMPORARILY DISCONTINUED IN AP
  3. ENTECAVIR [Suspect]
     Active Substance: ENTECAVIR
     Dosage: EVERY OTHER DAY DOSING WAS RESUMED IN JUNE 20XX-4
  4. ENTECAVIR [Suspect]
     Active Substance: ENTECAVIR
     Dosage: CHANGED TO DAILY ADMINISTRATION OF 0.5 MG
  5. ALFACALCIDOL [Concomitant]
     Active Substance: ALFACALCIDOL
     Indication: Product used for unknown indication
  6. TENOFOVIR ALAFENAMIDE [Concomitant]
     Active Substance: TENOFOVIR ALAFENAMIDE
     Indication: Product used for unknown indication
  7. OLMESARTAN MEDOXOMIL [Concomitant]
     Active Substance: OLMESARTAN MEDOXOMIL
     Indication: Product used for unknown indication
  8. AZELNIDIPINE [Concomitant]
     Active Substance: AZELNIDIPINE
     Indication: Product used for unknown indication

REACTIONS (3)
  - Hepatitis [Unknown]
  - Blood alkaline phosphatase increased [Unknown]
  - Nausea [Unknown]
